FAERS Safety Report 8812596 (Version 4)
Quarter: 2014Q2

REPORT INFORMATION
  Report Type: Spontaneous
  Country: US (occurrence: US)
  Receive Date: 20120927
  Receipt Date: 20140508
  Transmission Date: 20141212
  Serious: Yes (Hospitalization, Other)
  Sender: FDA-Public Use
  Company Number: US-009507513-1103USA00947

PATIENT
  Sex: Female
  Weight: 73.16 kg

DRUGS (8)
  1. FOSAMAX [Suspect]
     Indication: OSTEOPOROSIS
     Dosage: 70 MG, UNK
     Route: 048
     Dates: start: 20040617
  2. FOSAMAX [Suspect]
     Route: 048
     Dates: start: 200803
  3. ALENDRONATE SODIUM [Suspect]
     Dosage: 70 MG, QW
     Route: 048
  4. SYNTHROID [Concomitant]
     Indication: HYPOTHYROIDISM
  5. SYNTHROID [Concomitant]
     Indication: HYPOPARATHYROIDISM
  6. LEVOTHYROXINE SODIUM [Concomitant]
     Indication: HYPOTHYROIDISM
     Dosage: 75 MICROGRAM, QD
     Route: 048
  7. LEVOTHYROXINE SODIUM [Concomitant]
     Indication: HYPOPARATHYROIDISM
  8. LOVASTATIN [Concomitant]
     Indication: HYPERCHOLESTEROLAEMIA
     Dosage: 20 MG, HS
     Route: 048

REACTIONS (24)
  - Femur fracture [Unknown]
  - Femur fracture [Unknown]
  - Removal of internal fixation [Unknown]
  - Intramedullary rod insertion [Unknown]
  - Intramedullary rod insertion [Unknown]
  - Bronchitis [Unknown]
  - Fracture [Unknown]
  - Sinus disorder [Unknown]
  - Hypersensitivity [Unknown]
  - Impaired healing [Unknown]
  - Arthritis [Unknown]
  - Wrist fracture [Unknown]
  - Vitamin D deficiency [Unknown]
  - Essential hypertension [Unknown]
  - Vascular compression [Unknown]
  - Fracture nonunion [Unknown]
  - Fracture nonunion [Unknown]
  - Peripheral swelling [Unknown]
  - Pain in extremity [Unknown]
  - Pain in extremity [Unknown]
  - Pain in extremity [Unknown]
  - Drug ineffective [Unknown]
  - Drug ineffective [Unknown]
  - Oedema peripheral [Unknown]
